FAERS Safety Report 12129964 (Version 1)
Quarter: 2016Q1

REPORT INFORMATION
  Report Type: Spontaneous
  Country: None (occurrence: None)
  Receive Date: 20160229
  Receipt Date: 20160229
  Transmission Date: 20160526
  Serious: No
  Sender: FDA-Public Use
  Company Number: None

PATIENT
  Age: 35 Year
  Sex: Female
  Weight: 56.7 kg

DRUGS (1)
  1. ESCITALOPRAM 10MG [Suspect]
     Active Substance: ESCITALOPRAM OXALATE
     Indication: ANXIETY
     Dosage: 1 1/2 PILLS ONCE DAILY TAKEN BY MOUTH
     Route: 048
     Dates: start: 20150209, end: 20150501

REACTIONS (5)
  - Paraesthesia [None]
  - Dizziness [None]
  - Vision blurred [None]
  - Product substitution issue [None]
  - Drug withdrawal syndrome [None]
